FAERS Safety Report 16367721 (Version 2)
Quarter: 2019Q4

REPORT INFORMATION
  Report Type: Spontaneous
  Country: CA (occurrence: CA)
  Receive Date: 20190529
  Receipt Date: 20191008
  Transmission Date: 20200122
  Serious: Yes (Death, Other)
  Sender: FDA-Public Use
  Company Number: CA-TEVA-2019-CA-1054640

PATIENT
  Age: 23 Year
  Sex: Male

DRUGS (9)
  1. MOCLOBEMIDE [Interacting]
     Active Substance: MOCLOBEMIDE
     Indication: PRODUCT USED FOR UNKNOWN INDICATION
     Route: 048
  2. ACETANILIDE/PHENIRAMINE MALEATE/PHENYLEPHRINE HYDROCHLORIDE/VITAMIN C [Concomitant]
  3. DEXTROMETHORPHAN HYDROBROMIDE. [Interacting]
     Active Substance: DEXTROMETHORPHAN HYDROBROMIDE
     Indication: PRODUCT USED FOR UNKNOWN INDICATION
     Route: 065
  4. SERTRALINE HYDROCHLORIDE. [Suspect]
     Active Substance: SERTRALINE HYDROCHLORIDE
     Indication: PRODUCT USED FOR UNKNOWN INDICATION
     Route: 065
  5. SERTRALINE HYDROCHLORIDE. [Interacting]
     Active Substance: SERTRALINE HYDROCHLORIDE
     Route: 065
  6. FLUOXETINE [Concomitant]
     Active Substance: FLUOXETINE HYDROCHLORIDE
  7. MANERIX [Interacting]
     Active Substance: MOCLOBEMIDE
     Indication: PRODUCT USED FOR UNKNOWN INDICATION
     Route: 048
  8. PHENIRAMINE [Concomitant]
     Active Substance: PHENIRAMINE
  9. NORDAZEPAM [Concomitant]
     Active Substance: NORDAZEPAM

REACTIONS (8)
  - Agitation [Fatal]
  - Toxicity to various agents [Fatal]
  - Completed suicide [Fatal]
  - Chills [Fatal]
  - Hyperhidrosis [Fatal]
  - Intentional overdose [Fatal]
  - Pulmonary congestion [Fatal]
  - Drug interaction [Fatal]
